FAERS Safety Report 19668573 (Version 3)
Quarter: 2021Q4

REPORT INFORMATION
  Report Type: Report from Study
  Country: BR (occurrence: BR)
  Receive Date: 20210806
  Receipt Date: 20211103
  Transmission Date: 20220303
  Serious: Yes (Hospitalization, Other)
  Sender: FDA-Public Use
  Company Number: BR-ABBVIE-21K-020-4019238-00

PATIENT
  Age: 34 Year
  Sex: Female
  Weight: 62 kg

DRUGS (6)
  1. HUMIRA [Suspect]
     Active Substance: ADALIMUMAB
     Indication: Crohn^s disease
     Dosage: UNSPECIFIED DOSE?LOADING DOSE
     Route: 058
     Dates: start: 201712, end: 201712
  2. HUMIRA [Suspect]
     Active Substance: ADALIMUMAB
     Route: 058
     Dates: end: 201803
  3. HUMIRA [Suspect]
     Active Substance: ADALIMUMAB
     Dosage: LOADING DOSE?WEEK 00
     Route: 058
     Dates: start: 20210721, end: 20210721
  4. HUMIRA [Suspect]
     Active Substance: ADALIMUMAB
     Indication: Crohn^s disease
     Dosage: UNSPECIFIED DOSE
     Route: 058
     Dates: start: 20210825
  5. INFLIXIMAB [Suspect]
     Active Substance: INFLIXIMAB
     Indication: Crohn^s disease
     Route: 065
     Dates: end: 201910
  6. AZATHIOPRINE [Concomitant]
     Active Substance: AZATHIOPRINE
     Indication: Crohn^s disease

REACTIONS (9)
  - Intestinal obstruction [Not Recovered/Not Resolved]
  - Foetal vascular malperfusion [Recovered/Resolved]
  - Haemorrhage [Recovered/Resolved]
  - Hypertension [Recovered/Resolved]
  - Crohn^s disease [Recovering/Resolving]
  - Maternal exposure during pregnancy [Unknown]
  - Live birth [Unknown]
  - Normal newborn [Unknown]
  - Drug ineffective [Unknown]

NARRATIVE: CASE EVENT DATE: 20171201
